FAERS Safety Report 5039513-0 (Version None)
Quarter: 2006Q2

REPORT INFORMATION
  Report Type: 
  Country: None (occurrence: None)
  Receive Date: 20060629
  Receipt Date: 20060622
  Transmission Date: 20061013
  Serious: Yes (Other)
  Sender: FDA-Public Use
  Company Number: GBWYE767222JUN06

PATIENT
  Sex: Female

DRUGS (9)
  1. ENBREL [Suspect]
     Indication: PSORIATIC ARTHROPATHY
     Dosage: UNKNOWN
  2. ENBREL [Suspect]
     Dosage: RESTARTED AT A REDUCED DOSE, DOSE UNKNOWN
  3. AMITRIPTYLINE HCL [Concomitant]
     Dosage: UNKNOWN
  4. FOLIC ACID [Concomitant]
  5. OMEPRAZOLE [Concomitant]
  6. IRON [Concomitant]
  7. ATORVASTATIN CALCIUM [Concomitant]
     Dosage: UNKNOWN
  8. ATORVASTATIN CALCIUM [Concomitant]
     Dosage: UNKNOWN
  9. MORPHINE [Concomitant]
     Dosage: UNKNOWN

REACTIONS (3)
  - BLOOD BILIRUBIN ABNORMAL [None]
  - JAUNDICE [None]
  - LIVER FUNCTION TEST ABNORMAL [None]
